FAERS Safety Report 14857381 (Version 1)
Quarter: 2018Q2

REPORT INFORMATION
  Report Type: Spontaneous
  Country: US (occurrence: US)
  Receive Date: 20180508
  Receipt Date: 20180508
  Transmission Date: 20180711
  Serious: No
  Sender: FDA-Public Use
  Company Number: US-RADIUS HEALTH INC.-2018US000336

PATIENT
  Age: 65 Year
  Sex: Male

DRUGS (1)
  1. TYMLOS [Suspect]
     Active Substance: ABALOPARATIDE
     Indication: OSTEOPOROSIS POSTMENOPAUSAL
     Dosage: 80 MCG. DAILY
     Route: 058
     Dates: start: 20180209

REACTIONS (5)
  - Diarrhoea [Unknown]
  - Flatulence [Unknown]
  - Upper respiratory tract infection [Unknown]
  - Abdominal distension [Unknown]
  - Off label use [Unknown]

NARRATIVE: CASE EVENT DATE: 20180209
